FAERS Safety Report 15595482 (Version 1)
Quarter: 2018Q4

REPORT INFORMATION
  Report Type: Spontaneous
  Country: US (occurrence: US)
  Receive Date: 20181107
  Receipt Date: 20181107
  Transmission Date: 20190205
  Serious: No
  Sender: FDA-Public Use
  Company Number: US-CELGENEUS-USA-20181100088

PATIENT
  Age: 56 Year
  Sex: Female

DRUGS (8)
  1. METOPROLOL ER [Concomitant]
     Active Substance: METOPROLOL SUCCINATE
     Indication: CARDIAC DISORDER
     Dosage: 50 MILLIGRAM
     Route: 065
  2. LISINOPRIL. [Concomitant]
     Active Substance: LISINOPRIL
     Indication: HYPERTENSION
     Dosage: 5 MILLIGRAM
     Route: 065
  3. OTEZLA [Suspect]
     Active Substance: APREMILAST
     Indication: PSORIASIS
     Dosage: 60 MILLIGRAM
     Route: 048
     Dates: start: 20180825
  4. PRASUGREL. [Concomitant]
     Active Substance: PRASUGREL
     Indication: ANGINA PECTORIS
  5. ROSUVASTATIN. [Concomitant]
     Active Substance: ROSUVASTATIN
     Indication: HYPERCHOLESTEROLAEMIA
     Dosage: 40 MILLIGRAM
     Route: 065
  6. KCL [Concomitant]
     Active Substance: POTASSIUM CHLORIDE
     Indication: MINERAL SUPPLEMENTATION
     Dosage: 20 MILLIEQUIVALENTS
     Route: 065
  7. PRASUGREL. [Concomitant]
     Active Substance: PRASUGREL
     Indication: MYOCARDIAL INFARCTION
     Dosage: 10 MILLIGRAM
     Route: 065
  8. NOVOLOG FLEX [Concomitant]
     Indication: DIABETES MELLITUS
     Dosage: 30 IU (INTERNATIONAL UNIT)
     Route: 065

REACTIONS (1)
  - Haematuria [Recovered/Resolved]

NARRATIVE: CASE EVENT DATE: 20181017
